FAERS Safety Report 9939991 (Version 1)
Quarter: 2014Q1

REPORT INFORMATION
  Report Type: Report from Study
  Country: US (occurrence: US)
  Receive Date: 20140303
  Receipt Date: 20140303
  Transmission Date: 20141002
  Serious: No
  Sender: FDA-Public Use
  Company Number: US-ABBVIE-13P-163-1035250-00

PATIENT
  Age: 36 Year
  Sex: Female

DRUGS (17)
  1. HUMIRA PEN [Suspect]
     Indication: CROHN^S DISEASE
     Dates: start: 20120820, end: 201211
  2. FLUOXETINE [Concomitant]
     Indication: DEPRESSION
  3. FLUOXETINE [Concomitant]
  4. CRANBERRY [Concomitant]
     Indication: PROPHYLAXIS URINARY TRACT INFECTION
  5. CENTRUM [Concomitant]
     Indication: PRODUCT USED FOR UNKNOWN INDICATION
  6. LEVORA [Concomitant]
     Indication: CONTRACEPTION
  7. FISH OIL [Concomitant]
     Indication: PRODUCT USED FOR UNKNOWN INDICATION
  8. METOPROLOL [Concomitant]
     Indication: HYPERTENSION
  9. METFORMIN [Concomitant]
     Indication: DIABETES MELLITUS
  10. BACTRIM [Concomitant]
     Indication: URINARY TRACT INFECTION
     Dosage: 800/160 MG DAILY
  11. TRAMADOL [Concomitant]
     Indication: ARTHRALGIA
  12. TYLENOL EXTRA STRENGTH [Concomitant]
     Indication: BACK PAIN
  13. OMEPRAZOLE [Concomitant]
     Indication: CROHN^S DISEASE
  14. TYLENOL PM [Concomitant]
     Indication: INSOMNIA
  15. PENTASA [Concomitant]
     Indication: PRODUCT USED FOR UNKNOWN INDICATION
  16. NIACIN [Concomitant]
     Indication: PRODUCT USED FOR UNKNOWN INDICATION
  17. CINNAMON [Concomitant]
     Indication: PRODUCT USED FOR UNKNOWN INDICATION

REACTIONS (2)
  - Depression [Unknown]
  - Confusional state [Unknown]
